FAERS Safety Report 6026085-7 (Version None)
Quarter: 2008Q4

REPORT INFORMATION
  Report Type: 
  Country: None (occurrence: None)
  Receive Date: 20081230
  Receipt Date: 20081223
  Transmission Date: 20090506
  Serious: Yes (Other)
  Sender: FDA-Public Use
  Company Number: APP200801257

PATIENT
  Sex: Male

DRUGS (6)
  1. HEPARIN SODIUM INJECTION [Suspect]
     Indication: HAEMODIALYSIS
     Dosage: 5000 USP UNITS, PER CENTRAL LINE DUAL LUMEN
     Dates: start: 20081219, end: 20081219
  2. HEPARIN SODIUM INJECTION [Suspect]
     Indication: INTRAVENOUS CATHETER MANAGEMENT
     Dosage: 5000 USP UNITS, PER CENTRAL LINE DUAL LUMEN
     Dates: start: 20081219, end: 20081219
  3. HEPARIN SODIUM INJECTION [Suspect]
     Indication: ANTICOAGULANT THERAPY
     Dosage: 2000 USP UNITS, BOLUS, INTRAVENOUS BOLUS 1000 USP UNITS, HOURLY DURING 4 HOUR HEMODIALYSIS
     Route: 010
     Dates: start: 20081219, end: 20081219
  4. HEPARIN SODIUM INJECTION [Suspect]
     Indication: HAEMODIALYSIS
     Dosage: 2000 USP UNITS, BOLUS, INTRAVENOUS BOLUS 1000 USP UNITS, HOURLY DURING 4 HOUR HEMODIALYSIS
     Route: 010
     Dates: start: 20081219, end: 20081219
  5. HEPARIN SODIUM INJECTION [Suspect]
     Indication: ANTICOAGULANT THERAPY
     Dosage: 2000 USP UNITS, BOLUS, INTRAVENOUS BOLUS 1000 USP UNITS, HOURLY DURING 4 HOUR HEMODIALYSIS
     Route: 010
     Dates: start: 20081219, end: 20081219
  6. HEPARIN SODIUM INJECTION [Suspect]
     Indication: HAEMODIALYSIS
     Dosage: 2000 USP UNITS, BOLUS, INTRAVENOUS BOLUS 1000 USP UNITS, HOURLY DURING 4 HOUR HEMODIALYSIS
     Route: 010
     Dates: start: 20081219, end: 20081219

REACTIONS (1)
  - HAEMORRHAGE [None]
